FAERS Safety Report 15202739 (Version 1)
Quarter: 2018Q3

REPORT INFORMATION
  Report Type: Spontaneous
  Country: FR (occurrence: FR)
  Receive Date: 20180726
  Receipt Date: 20180726
  Transmission Date: 20181010
  Serious: Yes (Hospitalization)
  Sender: FDA-Public Use
  Company Number: PHHY2018FR054341

PATIENT
  Age: 69 Year
  Sex: Female

DRUGS (6)
  1. PYOSTACINE [Suspect]
     Active Substance: PRISTINAMYCIN
     Dosage: 6 DF, QD
     Route: 048
     Dates: start: 20180509
  2. PANTOPRAZOLE [Suspect]
     Active Substance: PANTOPRAZOLE
     Dosage: 40 MG, QD
     Route: 048
     Dates: start: 20180509
  3. INNOHEP [Suspect]
     Active Substance: TINZAPARIN SODIUM
     Indication: THROMBOSIS PROPHYLAXIS
     Dosage: UNK
     Route: 058
  4. PLAVIX [Suspect]
     Active Substance: CLOPIDOGREL BISULFATE
     Indication: THROMBOSIS PROPHYLAXIS
     Dosage: UNK
     Route: 048
  5. PYOSTACINE [Suspect]
     Active Substance: PRISTINAMYCIN
     Indication: PERIPHERAL VENOUS DISEASE
     Dosage: 6 DF, QD
     Route: 048
     Dates: start: 20180502
  6. PANTOPRAZOLE [Suspect]
     Active Substance: PANTOPRAZOLE
     Indication: PROPHYLAXIS AGAINST GASTROINTESTINAL ULCER
     Dosage: 40 MG, QD
     Route: 048
     Dates: start: 20180501

REACTIONS (2)
  - Hypertransaminasaemia [Recovering/Resolving]
  - Hepatitis acute [Recovering/Resolving]

NARRATIVE: CASE EVENT DATE: 20180510
